FAERS Safety Report 6442899-3 (Version None)
Quarter: 2009Q4

REPORT INFORMATION
  Report Type: 
  Country: None (occurrence: None)
  Receive Date: 20091117
  Receipt Date: 20091110
  Transmission Date: 20100525
  Serious: Yes (Death, Other)
  Sender: FDA-Public Use
  Company Number: TR-CELGENEUS-161-C5013-09110752

PATIENT
  Sex: Female
  Weight: 50 kg

DRUGS (1)
  1. CC-5013 [Suspect]
     Indication: MULTIPLE MYELOMA
     Route: 048
     Dates: start: 20090713, end: 20090727

REACTIONS (2)
  - DISEASE PROGRESSION [None]
  - RENAL FAILURE [None]
